FAERS Safety Report 12174487 (Version 1)
Quarter: 2016Q1

REPORT INFORMATION
  Report Type: Report from Study
  Country: US (occurrence: US)
  Receive Date: 20160312
  Receipt Date: 20160312
  Transmission Date: 20160526
  Serious: Yes (Death, Other)
  Sender: FDA-Public Use
  Company Number: US-ACCORD-038679

PATIENT
  Age: 70 Year

DRUGS (4)
  1. INOTUZUMAB [Concomitant]
     Active Substance: INOTUZUMAB OZOGAMICIN
     Indication: B-CELL TYPE ACUTE LEUKAEMIA
     Dates: start: 20111101
  2. METHOTREXATE [Suspect]
     Active Substance: METHOTREXATE
     Indication: B-CELL TYPE ACUTE LEUKAEMIA
     Dosage: ALSO RECEIVED CYCLICAL ON 01-NOV-2011.??HYPER-CVAD REGIMEN??CUMULATIVE DOSE:12 MG
     Route: 037
     Dates: start: 20131104
  3. RITUXIMAB [Concomitant]
     Active Substance: RITUXIMAB
     Indication: B-CELL TYPE ACUTE LEUKAEMIA
     Dates: start: 20111101
  4. CYTARABINE/CYTARABINE HYDROCHLORIDE/CYTARABINE OCFOSFATE [Concomitant]
     Indication: B-CELL TYPE ACUTE LEUKAEMIA
     Dosage: ALTERNATING THERAPY ON DAYS 2 AND 7 OF EACH HYPER-CVAD COURSE FOR A TOTAL OF 8 OR 12 DOSES
     Route: 037
     Dates: start: 20111101

REACTIONS (2)
  - Myelopathy [Recovering/Resolving]
  - Multiple organ dysfunction syndrome [Fatal]

NARRATIVE: CASE EVENT DATE: 20131106
